FAERS Safety Report 17822096 (Version 5)
Quarter: 2022Q2

REPORT INFORMATION
  Report Type: Report from Study
  Country: MX (occurrence: MX)
  Receive Date: 20200526
  Receipt Date: 20220615
  Transmission Date: 20220721
  Serious: Yes (Hospitalization, Other)
  Sender: FDA-Public Use
  Company Number: None

PATIENT
  Age: 36 Year
  Sex: Female
  Weight: 107 kg

DRUGS (2)
  1. TASIGNA [Suspect]
     Active Substance: NILOTINIB
     Indication: Chronic myeloid leukaemia
     Dosage: 400 MG, Q12H
     Route: 048
     Dates: start: 20200415
  2. TASIGNA [Suspect]
     Active Substance: NILOTINIB
     Dosage: UNK
     Route: 048

REACTIONS (19)
  - Coronavirus infection [Unknown]
  - Abdominal pain [Recovering/Resolving]
  - Leukaemia [Unknown]
  - Blood triglycerides abnormal [Not Recovered/Not Resolved]
  - Haemoglobin abnormal [Unknown]
  - Blood glucose abnormal [Not Recovered/Not Resolved]
  - Abdominal discomfort [Not Recovered/Not Resolved]
  - Anxiety [Unknown]
  - Vomiting [Recovering/Resolving]
  - Decreased appetite [Unknown]
  - Insomnia [Unknown]
  - Mood altered [Unknown]
  - Illness [Unknown]
  - Weight decreased [Recovering/Resolving]
  - Nausea [Unknown]
  - Headache [Not Recovered/Not Resolved]
  - Stress [Unknown]
  - Myalgia [Not Recovered/Not Resolved]
  - Inflammation [Unknown]

NARRATIVE: CASE EVENT DATE: 20200520
